FAERS Safety Report 13943422 (Version 3)
Quarter: 2017Q4

REPORT INFORMATION
  Report Type: Spontaneous
  Country: GB (occurrence: GB)
  Receive Date: 20170907
  Receipt Date: 20171213
  Transmission Date: 20180320
  Serious: Yes (Congenital Anomaly, Other)
  Sender: FDA-Public Use
  Company Number: GB-ASTRAZENECA-2017SE31467

PATIENT
  Age: 0 Year
  Sex: Female

DRUGS (2)
  1. LOSEC [Suspect]
     Active Substance: OMEPRAZOLE
     Indication: OESOPHAGEAL DISORDER
     Route: 064
  2. LOSEC [Suspect]
     Active Substance: OMEPRAZOLE
     Indication: OESOPHAGEAL DISORDER
     Route: 063
     Dates: start: 2003, end: 2005

REACTIONS (6)
  - Cardiac murmur [Not Recovered/Not Resolved]
  - General physical health deterioration [Unknown]
  - Premature baby [Unknown]
  - Exposure during breast feeding [Recovered/Resolved]
  - Congenital foot malformation [Not Recovered/Not Resolved]
  - Bone disorder [Unknown]

NARRATIVE: CASE EVENT DATE: 2003
